FAERS Safety Report 5875966-3 (Version None)
Quarter: 2008Q3

REPORT INFORMATION
  Report Type: 
  Country: None (occurrence: None)
  Receive Date: 20080905
  Receipt Date: 20080825
  Transmission Date: 20090109
  Serious: Yes (Hospitalization)
  Sender: FDA-Public Use
  Company Number: 2008-02725

PATIENT
  Age: 57 Year
  Sex: Male
  Weight: 113 kg

DRUGS (3)
  1. VELCADE [Suspect]
     Indication: MULTIPLE MYELOMA
     Dosage: 1.3  MG/M2, INTRAVENOUS
     Route: 042
     Dates: start: 20080527, end: 20080704
  2. DOXORUBICIN HCL [Suspect]
     Indication: MULTIPLE MYELOMA
     Dosage: 9 MG/M2, INTRAVENOUS
     Dates: start: 20080527, end: 20080627
  3. DEXAMETHASONE TAB [Suspect]
     Indication: MULTIPLE MYELOMA
     Dosage: 40 MG, ORAL
     Route: 048
     Dates: start: 20080527, end: 20080701

REACTIONS (1)
  - CEREBRAL INFARCTION [None]
